FAERS Safety Report 4574035-2 (Version None)
Quarter: 2005Q1

REPORT INFORMATION
  Report Type: 
  Country: None (occurrence: None)
  Receive Date: 20050204
  Receipt Date: 20050123
  Transmission Date: 20050727
  Serious: Yes (Other)
  Sender: FDA-Public Use
  Company Number: 2005023462

PATIENT
  Age: 85 Year
  Sex: Female
  Weight: 51.2565 kg

DRUGS (10)
  1. ROGAINE [Suspect]
     Indication: ALOPECIA
     Dosage: 1 ML TWICE, TOPICAL
     Route: 061
     Dates: start: 20050120, end: 20050121
  2. LEVOTHYROXINE SODIUM [Concomitant]
  3. EZETIMIBE (EZETIMIBE) [Concomitant]
  4. ACETYLSALICYLIC ACID SRT [Concomitant]
  5. LISINOPRIL (LISNOPRIL) [Concomitant]
  6. CYANOCOBALAMIN (CYANOCOBALAMIN) [Concomitant]
  7. CENTRUM SILVER (ASCORBIC ACID, CALCIUM, MINIERALS NOS, RETINOL, TOCOPH [Concomitant]
  8. FERROUS GLUCONATE (FERROUS GLUCONATE) [Concomitant]
  9. CALCIUM (CALCIUM) [Concomitant]
  10. FISH OIL (FISH OIL) [Concomitant]

REACTIONS (4)
  - CHEST PAIN [None]
  - CONFUSIONAL STATE [None]
  - LOSS OF CONSCIOUSNESS [None]
  - PALPITATIONS [None]
